FAERS Safety Report 10403081 (Version 1)
Quarter: 2014Q3

REPORT INFORMATION
  Report Type: Spontaneous
  Country: US (occurrence: None)
  Receive Date: 20140821
  Receipt Date: 20140821
  Transmission Date: 20150326
  Serious: Yes (Other)
  Sender: FDA-Public Use
  Company Number: None

PATIENT
  Age: 67 Year
  Sex: Male
  Weight: 110.5 kg

DRUGS (12)
  1. LEVOTHYROXIN [Concomitant]
     Active Substance: LEVOTHYROXINE
  2. LISINOPRIL. [Concomitant]
     Active Substance: LISINOPRIL
  3. METHADONE [Concomitant]
     Active Substance: METHADONE HYDROCHLORIDE
  4. AVODART [Concomitant]
     Active Substance: DUTASTERIDE
  5. REVLIMID [Concomitant]
     Active Substance: LENALIDOMIDE
  6. ADVIL [Concomitant]
     Active Substance: IBUPROFEN
  7. ZOLEDRONIC ACID [Suspect]
     Active Substance: ZOLEDRONIC ACID
     Indication: PLASMA CELL MYELOMA
     Dosage: 4 MG, Q 3-4 WEEKS
     Route: 042
     Dates: start: 20120723, end: 20140702
  8. K-DUR [Concomitant]
     Active Substance: POTASSIUM CHLORIDE
  9. VELCADE [Concomitant]
     Active Substance: BORTEZOMIB
  10. HYDROCORTISONE. [Concomitant]
     Active Substance: HYDROCORTISONE
  11. PRILOSEC [Concomitant]
     Active Substance: OMEPRAZOLE MAGNESIUM
  12. DEXAMETHASONE. [Concomitant]
     Active Substance: DEXAMETHASONE

REACTIONS (2)
  - Bone disorder [None]
  - Osteonecrosis of jaw [None]

NARRATIVE: CASE EVENT DATE: 20140801
